FAERS Safety Report 8769753 (Version 1)
Quarter: 2012Q4

REPORT INFORMATION
  Report Type: 
  Country: GB (occurrence: GB)
  Receive Date: 20120905
  Receipt Date: 20120905
  Transmission Date: 20130627
  Serious: Yes (Life-Threatening, Hospitalization)
  Sender: FDA-Public Use
  Company Number: GB-RANBAXY-2012RR-59735

PATIENT
  Age: 37 Year
  Sex: Male

DRUGS (2)
  1. OFLOXACIN [Suspect]
     Indication: PRODUCT USED FOR UNKNOWN INDICATION
     Dosage: UNK
     Route: 065
     Dates: start: 20120808
  2. AMOXICILLIN\CLAVULANATE POTASSIUM [Concomitant]
     Indication: PRODUCT USED FOR UNKNOWN INDICATION
     Dosage: UNK
     Route: 065
     Dates: start: 20120810

REACTIONS (3)
  - Syncope [Recovering/Resolving]
  - Hypotension [Unknown]
  - Bradycardia [Unknown]
